FAERS Safety Report 7740020-2 (Version None)
Quarter: 2011Q3

REPORT INFORMATION
  Report Type: 
  Country: None (occurrence: None)
  Receive Date: 20110909
  Receipt Date: 20110830
  Transmission Date: 20111222
  Serious: Yes (Other)
  Sender: FDA-Public Use
  Company Number: GB-JNJFOC-20110900702

PATIENT
  Sex: Female

DRUGS (1)
  1. GOLIMUMAB [Suspect]
     Indication: PRODUCT USED FOR UNKNOWN INDICATION
     Route: 058

REACTIONS (4)
  - URINARY RETENTION [None]
  - BLADDER PAIN [None]
  - BACK PAIN [None]
  - URINE FLOW DECREASED [None]
